FAERS Safety Report 17005870 (Version 1)
Quarter: 2019Q4

REPORT INFORMATION
  Report Type: Spontaneous
  Country: US (occurrence: US)
  Receive Date: 20190926
  Receipt Date: 20190926
  Transmission Date: 20200122
  Serious: No
  Sender: FDA-Public Use
  Company Number: None

PATIENT
  Sex: Male

DRUGS (1)
  1. ABIRATERONE 250MG APOTEX [Suspect]
     Active Substance: ABIRATERONE
     Indication: PROSTATE CANCER
     Dosage: ?          OTHER DOSE:TAKE 2 TABS;?
     Route: 048
     Dates: start: 20190726

REACTIONS (4)
  - Therapy cessation [None]
  - Dizziness [None]
  - Feeling abnormal [None]
  - Fatigue [None]
